FAERS Safety Report 26081280 (Version 2)
Quarter: 2025Q4

REPORT INFORMATION
  Report Type: Spontaneous
  Country: EU (occurrence: EU)
  Receive Date: 20251124
  Receipt Date: 20251210
  Transmission Date: 20260118
  Serious: Yes (Other)
  Sender: BAUSCH AND LOMB
  Company Number: None

PATIENT
  Age: 29 Year
  Sex: Female
  Weight: 70.3 kg

DRUGS (14)
  1. LORAZEPAM [Suspect]
     Active Substance: LORAZEPAM
     Indication: Restlessness
     Dosage: 1 PIECE PER DOSE IF NEEDED
     Route: 048
     Dates: start: 20250816
  2. DIAZEPAM [Suspect]
     Active Substance: DIAZEPAM
     Indication: Restlessness
     Dosage: 5 MG PER DOSE IF NEEDED
     Route: 048
     Dates: start: 20250610
  3. HALOPERIDOL [Suspect]
     Active Substance: HALOPERIDOL
     Indication: Restlessness
     Dosage: 5 MG IF NEEDED
     Route: 048
     Dates: start: 20250609
  4. LACTULOSE [Suspect]
     Active Substance: LACTULOSE
     Indication: Product used for unknown indication
     Dosage: 500ML, 10 ML PER DOSE
     Route: 048
     Dates: start: 20250923
  5. LACTULOSE [Suspect]
     Active Substance: LACTULOSE
     Dosage: LACTULOSE AL, FIRST ADMINISTRATION PLANNED FOR 28-OCT-2025, 10-10-10 ML
     Route: 048
  6. AMISULPRIDE [Suspect]
     Active Substance: AMISULPRIDE
     Indication: Product used for unknown indication
     Dosage: 1.5-0-0 FIRST ADMINISTRATION PLANNED FOR 31-OCT-2025
     Route: 048
  7. BIPERIDEN [Suspect]
     Active Substance: BIPERIDEN
     Indication: Extrapyramidal disorder
     Dosage: BIPERIDEN RETARD, 1-0-0 FIRST ADMINISTRATION PLANNED FOR 24-JUN-2025
     Route: 048
  8. BIPERIDEN [Suspect]
     Active Substance: BIPERIDEN
     Dosage: 1 PIECE PER DOSE IF NEEDED
     Route: 048
     Dates: start: 20250625
  9. CLOZAPINE [Suspect]
     Active Substance: CLOZAPINE
     Indication: Product used for unknown indication
     Dosage: 2 TABLETS IN THE EVENING, FIRST ADMINISTRATION PLANNED FOR 13-OCT-2025
     Route: 048
  10. CLOZAPINE [Suspect]
     Active Substance: CLOZAPINE
     Dosage: 0-0-1
     Route: 048
  11. POLYETHYLENE GLYCOLS [Suspect]
     Active Substance: POLYETHYLENE GLYCOLS
     Indication: Product used for unknown indication
     Dosage: PULVER 13.7G, ONE SACHET EACH MORNING/NOON/EVENING, FIRST ADMINISTRATION PLANNED FOR 22-SEP-2025
     Route: 048
  12. SERTRALINE HYDROCHLORIDE [Suspect]
     Active Substance: SERTRALINE HYDROCHLORIDE
     Indication: Product used for unknown indication
     Dosage: ONE TABLET IN THE MORNING. FIRST ADMINISTRATION PLANNED FOR 25-SEP-2025
     Route: 048
  13. IBUPROFEN [Suspect]
     Active Substance: IBUPROFEN
     Indication: Pain
     Dosage: 1 PIECE PER DOSE IF NEEDED
     Route: 048
     Dates: start: 20250804
  14. PROMETHAZINE [Suspect]
     Active Substance: PROMETHAZINE HYDROCHLORIDE
     Indication: Restlessness
     Dosage: 1 PIECE PER DOSE IF NEEDED
     Route: 048
     Dates: start: 20250608

REACTIONS (38)
  - Exophthalmos [Unknown]
  - Angina pectoris [Unknown]
  - Circulatory collapse [Unknown]
  - Syncope [Unknown]
  - Loss of consciousness [Unknown]
  - Epilepsy [Unknown]
  - Seizure [Unknown]
  - Fear of death [Unknown]
  - Foaming at mouth [Unknown]
  - Human bite [Unknown]
  - Head discomfort [Unknown]
  - Screaming [Unknown]
  - Pyrexia [Unknown]
  - Weight increased [Unknown]
  - Muscle twitching [Unknown]
  - Motor dysfunction [Unknown]
  - Posture abnormal [Unknown]
  - Pelvic pain [Unknown]
  - Uterine pain [Unknown]
  - Dysphemia [Unknown]
  - Speech disorder [Unknown]
  - Abdominal pain [Unknown]
  - Amenorrhoea [Unknown]
  - Hyperacusis [Unknown]
  - Tongue biting [Unknown]
  - Stress [Unknown]
  - Anxiety [Unknown]
  - Amnesia [Unknown]
  - Alopecia [Unknown]
  - Constipation [Unknown]
  - Tremor [Unknown]
  - Memory impairment [Unknown]
  - Dizziness [Unknown]
  - Headache [Unknown]
  - Confusional state [Unknown]
  - Nausea [Unknown]
  - Circumstance or information capable of leading to medication error [Unknown]
  - Contraindicated product administered [Unknown]

NARRATIVE: CASE EVENT DATE: 20250101
